FAERS Safety Report 7468327-7 (Version None)
Quarter: 2011Q2

REPORT INFORMATION
  Report Type: 
  Country: None (occurrence: None)
  Receive Date: 20110509
  Receipt Date: 20110503
  Transmission Date: 20111010
  Serious: Yes (Other)
  Sender: FDA-Public Use
  Company Number: FI-PFIZER INC-2011072014

PATIENT
  Age: 56 Year
  Sex: Female

DRUGS (6)
  1. TEMESTA [Concomitant]
     Dosage: 1 MG, (1-3 TABLET PER DAY)
     Route: 048
  2. DIUREX [Concomitant]
     Indication: OEDEMA
     Dosage: 1 DF, 1X/DAY
     Route: 048
  3. ACTIVELLE [Concomitant]
     Indication: HORMONE REPLACEMENT THERAPY
     Dosage: 1 DF, 1X/DAY
  4. RIVATRIL [Concomitant]
     Indication: ORTHOSTATIC TREMOR
     Dosage: 0.5 MG, 4X/DAY
  5. PANTOPRAZOLE [Suspect]
     Indication: GASTROOESOPHAGEAL REFLUX DISEASE
     Dosage: 40 MG, (1-2 TABLET PER DAY)
     Route: 048
  6. SEPRAM [Concomitant]
     Dosage: 20 MG, 0.5 DOSE FORM

REACTIONS (1)
  - GASTRIC POLYPS [None]
